FAERS Safety Report 23030857 (Version 1)
Quarter: 2023Q4

REPORT INFORMATION
  Report Type: Report from Study
  Country: FR (occurrence: FR)
  Receive Date: 20231005
  Receipt Date: 20231005
  Transmission Date: 20240109
  Serious: Yes (Hospitalization)
  Sender: FDA-Public Use
  Company Number: FR-SA-SAC20231003000534

PATIENT
  Age: 61 Year
  Sex: Female
  Weight: 70 kg

DRUGS (8)
  1. ISATUXIMAB [Suspect]
     Active Substance: ISATUXIMAB
     Indication: Plasma cell myeloma
     Dosage: 10 UG/KG; J1, J15
     Route: 041
     Dates: start: 20220905, end: 20220905
  2. ISATUXIMAB [Suspect]
     Active Substance: ISATUXIMAB
     Dosage: 10 UG/KG; J1, J15
     Route: 041
     Dates: start: 20230608, end: 20230608
  3. CARFILZOMIB [Suspect]
     Active Substance: CARFILZOMIB
     Indication: Plasma cell myeloma
     Dosage: 56 MG/M2, J1, J8 AND J15
     Route: 042
     Dates: start: 20220905, end: 20220905
  4. CARFILZOMIB [Suspect]
     Active Substance: CARFILZOMIB
     Dosage: 56 MG/M2, J1, J8 AND J15
     Route: 042
     Dates: start: 20230608, end: 20230608
  5. LENALIDOMIDE [Suspect]
     Active Substance: LENALIDOMIDE
     Indication: Plasma cell myeloma
     Dosage: 25 MG; J1 TO J21
     Route: 048
     Dates: start: 20220905, end: 20220905
  6. LENALIDOMIDE [Suspect]
     Active Substance: LENALIDOMIDE
     Dosage: 25 MG; J1 TO J21
     Route: 048
     Dates: start: 20230609, end: 20230609
  7. DEXAMETHASONE [Suspect]
     Active Substance: DEXAMETHASONE
     Indication: Plasma cell myeloma
     Dosage: 40 MG; J1, J8, J15, J22
     Route: 048
     Dates: start: 20220905, end: 20220905
  8. DEXAMETHASONE [Suspect]
     Active Substance: DEXAMETHASONE
     Dosage: 40 MG; J1, J8, J15, J22
     Route: 048
     Dates: start: 20230608, end: 20230608

REACTIONS (1)
  - Device related infection [Recovered/Resolved]

NARRATIVE: CASE EVENT DATE: 20230610
